FAERS Safety Report 5147053-3 (Version None)
Quarter: 2006Q4

REPORT INFORMATION
  Report Type: 
  Country: None (occurrence: None)
  Receive Date: 20061102
  Receipt Date: 20061027
  Transmission Date: 20070319
  Serious: Yes (Hospitalization)
  Sender: FDA-Public Use
  Company Number: MEDI-0004853

PATIENT
  Age: 53 Year
  Sex: Male

DRUGS (11)
  1. ETHYOL [Suspect]
     Indication: RADIOTHERAPY
     Dosage: 500 MG, 5 IN 5 D, SUBCUTANEOUS
     Route: 058
     Dates: start: 20060619, end: 20060707
  2. ETHYOL [Suspect]
     Indication: RADIOTHERAPY
     Dosage: 500 MG, 5 IN 5 D, SUBCUTANEOUS
     Route: 058
     Dates: start: 20060712, end: 20060713
  3. RADIATION THERAPY [Concomitant]
  4. CISPLATIN [Concomitant]
  5. FLUOROURACIL [Concomitant]
  6. VICODIN [Concomitant]
  7. BENADRYL [Concomitant]
  8. LIDOCAINE [Concomitant]
  9. MAALOX (MAGNESIUM HYDROXIDE, ALUMINIUM HYDROXIDE GEL) [Concomitant]
  10. NEUPOGEN [Concomitant]
  11. SENOKOT [Concomitant]

REACTIONS (11)
  - ASTHENIA [None]
  - BLOOD CULTURE POSITIVE [None]
  - FATIGUE [None]
  - GENERALISED ERYTHEMA [None]
  - LABORATORY TEST INTERFERENCE [None]
  - MALAISE [None]
  - PHARYNGOLARYNGEAL PAIN [None]
  - PRURITUS [None]
  - RADIATION SKIN INJURY [None]
  - SKIN EXFOLIATION [None]
  - STAPHYLOCOCCAL INFECTION [None]
